FAERS Safety Report 22907783 (Version 3)
Quarter: 2024Q1

REPORT INFORMATION
  Report Type: Spontaneous
  Country: CA (occurrence: CA)
  Receive Date: 20230905
  Receipt Date: 20240226
  Transmission Date: 20240410
  Serious: Yes (Other)
  Sender: FDA-Public Use
  Company Number: CA-PFIZER INC-202300291077

PATIENT
  Age: 70 Year
  Sex: Male

DRUGS (8)
  1. SULFASALAZINE [Suspect]
     Active Substance: SULFASALAZINE
     Dosage: 1 DF
     Route: 065
     Dates: start: 202103
  2. COVID-19 VACCINE [Concomitant]
     Dosage: DOSE NUMBER UNKNONW (BOOSTER), SINGLE
     Dates: start: 20230613, end: 20230613
  3. ORENCIA [Concomitant]
     Active Substance: ABATACEPT
     Dosage: UNK
     Dates: start: 202302, end: 20230830
  4. PREDNISONE [Concomitant]
     Active Substance: PREDNISONE
     Dosage: WITH TAPERING DOSES
     Dates: start: 202310
  5. PERINDOPRIL [Concomitant]
     Active Substance: PERINDOPRIL
     Indication: Blood pressure abnormal
     Dosage: 4 MG, 1X/DAY
     Route: 065
  6. HYDROXYCHLOROQUINE SULFATE [Concomitant]
     Active Substance: HYDROXYCHLOROQUINE SULFATE
     Dosage: 1 DF DOSAGE INFO: UNKNOWN
     Route: 065
     Dates: start: 2020
  7. RITUXIMAB [Concomitant]
     Active Substance: RITUXIMAB
     Indication: Rheumatoid arthritis
     Dosage: DAY 1 AND DAY 15
     Route: 042
     Dates: start: 20230914, end: 20230929
  8. XELJANZ [Concomitant]
     Active Substance: TOFACITINIB CITRATE
     Dosage: 1 DF DOSAGE INFO: UNKNOWN. DISCONTINUED
     Route: 048
     Dates: start: 202007, end: 20230217

REACTIONS (4)
  - Cholecystectomy [Unknown]
  - Gait inability [Unknown]
  - Pain [Unknown]
  - Liver disorder [Unknown]

NARRATIVE: CASE EVENT DATE: 20210101
